FAERS Safety Report 19360292 (Version 1)
Quarter: 2021Q2

REPORT INFORMATION
  Report Type: Spontaneous
  Country: MX (occurrence: MX)
  Receive Date: 20210601
  Receipt Date: 20210601
  Transmission Date: 20210717
  Serious: Yes (Other)
  Sender: FDA-Public Use
  Company Number: MX-TAKEDA-2021TUS033906

PATIENT
  Age: 37 Year
  Sex: Male

DRUGS (3)
  1. BORTEZOMIB. [Suspect]
     Active Substance: BORTEZOMIB
     Indication: POEMS SYNDROME
     Dosage: UNK
     Route: 065
     Dates: start: 2013
  2. CYCLOPHOSPHAMIDE. [Suspect]
     Active Substance: CYCLOPHOSPHAMIDE
     Indication: POEMS SYNDROME
     Dosage: UNK
     Route: 065
     Dates: start: 2013
  3. DEXAMETHASONE. [Suspect]
     Active Substance: DEXAMETHASONE
     Indication: POEMS SYNDROME
     Dosage: 40 MILLIGRAM, 1/WEEK
     Route: 065
     Dates: start: 2013

REACTIONS (2)
  - Off label use [Unknown]
  - HIV infection [Unknown]

NARRATIVE: CASE EVENT DATE: 2013
